FAERS Safety Report 4670182-5 (Version None)
Quarter: 2005Q2

REPORT INFORMATION
  Report Type: 
  Country: None (occurrence: None)
  Receive Date: 20050520
  Receipt Date: 20050512
  Transmission Date: 20051028
  Serious: Yes (Hospitalization, Other)
  Sender: FDA-Public Use
  Company Number: 2005018012

PATIENT
  Age: 57 Year
  Sex: Female

DRUGS (11)
  1. ZYVOX [Suspect]
     Indication: ILL-DEFINED DISORDER
     Dosage: 1200 MG (600 MG BID) ORAL
     Route: 048
     Dates: start: 20050119, end: 20050120
  2. LORAZEPAM [Concomitant]
  3. CLONAZEPAM [Concomitant]
  4. LEVETIRACETAM [Concomitant]
  5. ETHOSUXIMIDE [Concomitant]
  6. PHENYTOIN SODIUM [Concomitant]
  7. METOCLOPRAMIDE [Concomitant]
  8. FUROSEMIDE [Concomitant]
  9. CHLORDIAZEPOXIDE [Concomitant]
  10. POTASSIUM CHLORIDE [Concomitant]
  11. KLIOGEST ^NOVO INDUSTRI^ (ESTRADIOL, NORETHISTERONE ACETATE) [Concomitant]

REACTIONS (2)
  - CONVULSION [None]
  - DRUG INTERACTION [None]
